FAERS Safety Report 25212705 (Version 1)
Quarter: 2025Q2

REPORT INFORMATION
  Report Type: Spontaneous
  Country: IN (occurrence: IN)
  Receive Date: 20250418
  Receipt Date: 20250418
  Transmission Date: 20250716
  Serious: Yes (Hospitalization)
  Sender: BAUSCH AND LOMB
  Company Number: IN-MLMSERVICE-20250407-PI469961-00120-1

PATIENT
  Age: 43 Year
  Sex: Male

DRUGS (1)
  1. DICLOFENAC [Suspect]
     Active Substance: DICLOFENAC
     Indication: Pyrexia
     Route: 065

REACTIONS (1)
  - Salmonellosis [Recovered/Resolved]
